FAERS Safety Report 23083406 (Version 1)
Quarter: 2023Q4

REPORT INFORMATION
  Report Type: Spontaneous
  Country: US (occurrence: None)
  Receive Date: 20231019
  Receipt Date: 20231019
  Transmission Date: 20240110
  Serious: Yes (Hospitalization, Disabling)
  Sender: FDA-Public Use
  Company Number: None

PATIENT
  Age: 25 Year
  Sex: Female
  Weight: 88.88 kg

DRUGS (11)
  1. CIPROFLOXACIN [Suspect]
     Active Substance: CIPROFLOXACIN
     Indication: Diarrhoea infectious
     Dosage: OTHER QUANTITY : 1 CAPSULE(S);?FREQUENCY : TWICE A DAY;?
     Route: 048
     Dates: start: 20230818, end: 20230821
  2. Olly Probiotic Gummies [Concomitant]
  3. NAC Supplements [Concomitant]
  4. COENZYME Q10 [Concomitant]
     Active Substance: DIETARY SUPPLEMENT\UBIDECARENONE
  5. MAGNESIUM [Concomitant]
     Active Substance: MAGNESIUM
  6. VITAMINS [Concomitant]
     Active Substance: VITAMINS
  7. Bai [Concomitant]
  8. POM Juice [Concomitant]
  9. DIETARY SUPPLEMENT [Concomitant]
     Active Substance: DIETARY SUPPLEMENT
  10. Avocado Tea [Concomitant]
  11. TARAXACUM OFFICINALE ROOT [Concomitant]
     Active Substance: TARAXACUM OFFICINALE ROOT

REACTIONS (18)
  - Escherichia infection [None]
  - Hypoaesthesia [None]
  - Paraesthesia [None]
  - Paraesthesia [None]
  - Joint noise [None]
  - Symptom recurrence [None]
  - Toxicity to various agents [None]
  - Dysphagia [None]
  - Coordination abnormal [None]
  - Brain fog [None]
  - Clumsiness [None]
  - Palpitations [None]
  - Muscle spasms [None]
  - Neuropathy peripheral [None]
  - Joint stiffness [None]
  - Musculoskeletal stiffness [None]
  - Dry mouth [None]
  - Fear [None]

NARRATIVE: CASE EVENT DATE: 20230820
